FAERS Safety Report 10730563 (Version 3)
Quarter: 2015Q1

REPORT INFORMATION
  Report Type: Spontaneous
  Country: US (occurrence: US)
  Receive Date: 20150122
  Receipt Date: 20150311
  Transmission Date: 20150721
  Serious: Yes (Other)
  Sender: FDA-Public Use
  Company Number: US-PFIZER INC-2015018398

PATIENT
  Age: 45 Year
  Sex: Female
  Weight: 74.38 kg

DRUGS (11)
  1. LYRICA [Suspect]
     Active Substance: PREGABALIN
     Indication: NEUROPATHY PERIPHERAL
     Dosage: UNK
  2. WELLBUTRIN XL [Concomitant]
     Active Substance: BUPROPION HYDROCHLORIDE
     Dosage: 150 MG, 1X/DAY
     Route: 048
     Dates: start: 20140402
  3. CITALOPRAM [Concomitant]
     Active Substance: CITALOPRAM HYDROBROMIDE
     Dosage: 40 MG, 1X/DAY
     Route: 048
     Dates: start: 20140402
  4. TRIAMCINOLONE ACETONIDE. [Concomitant]
     Active Substance: TRIAMCINOLONE ACETONIDE
     Dosage: UNK UNK, 2X/DAY
     Route: 061
     Dates: start: 20140523
  5. METAMUCIL [Concomitant]
     Active Substance: PLANTAGO SEED
     Dosage: UNK
     Dates: start: 20140825
  6. XANAX [Concomitant]
     Active Substance: ALPRAZOLAM
     Dosage: 0.5 MG, AS NEEDED (TAKE 0.5 - 1 TABLET BY ORAL ROUTE NO MORE THAN 3 TIMES PER DAY, PRN)
     Route: 048
     Dates: start: 20131202
  7. VITAMIN B12 [Concomitant]
     Active Substance: CYANOCOBALAMIN
     Dosage: 1 ML, WEEKLY
     Route: 030
     Dates: start: 20131227
  8. WOMEN^S DAILY MULTIVITAMIN [Concomitant]
  9. GABAPENTIN. [Concomitant]
     Active Substance: GABAPENTIN
     Dosage: 100 MG, 3X/DAY
     Route: 048
     Dates: start: 20140825
  10. HYDROCODONE W/ACETAMINOPHEN [Concomitant]
     Active Substance: ACETAMINOPHEN\HYDROCODONE BITARTRATE
     Indication: PAIN
     Dosage: HYDROCODONE BITARTRATE 5MG, PARACETAMOL 325MG, 4 X DAY AS NEEDED
     Route: 048
     Dates: start: 20140825
  11. DIFLUCAN [Concomitant]
     Active Substance: FLUCONAZOLE
     Dosage: 150 MG, 1X/DAY, REPEAT IN 4 DAYS
     Route: 048
     Dates: start: 20140618, end: 20140825

REACTIONS (19)
  - Hypoaesthesia [Unknown]
  - Headache [Unknown]
  - Menorrhagia [Unknown]
  - Peripheral swelling [Unknown]
  - Disease progression [Unknown]
  - Memory impairment [Unknown]
  - Uterine disorder [Unknown]
  - Gait disturbance [Unknown]
  - Muscular weakness [Unknown]
  - Insomnia [Unknown]
  - Cholelithiasis [Unknown]
  - Paraesthesia [Unknown]
  - Dizziness [Unknown]
  - Ovarian disorder [Unknown]
  - Goitre [Unknown]
  - Neuralgia [Unknown]
  - Depression [Unknown]
  - Anaemia [Unknown]
  - Hyperkeratosis [Unknown]

NARRATIVE: CASE EVENT DATE: 20130708
